FAERS Safety Report 17978999 (Version 1)
Quarter: 2020Q3

REPORT INFORMATION
  Report Type: Report from Study
  Country: IT (occurrence: IT)
  Receive Date: 20200703
  Receipt Date: 20200703
  Transmission Date: 20201103
  Serious: Yes (Hospitalization)
  Sender: FDA-Public Use
  Company Number: IT-TEVA-2020-IT-1794027

PATIENT
  Age: 77 Year
  Sex: Female

DRUGS (12)
  1. ELIQUIS [Suspect]
     Active Substance: APIXABAN
     Indication: THROMBOSIS PROPHYLAXIS
     Dates: start: 20190101, end: 20191203
  2. EUTIROX [Concomitant]
     Active Substance: LEVOTHYROXINE SODIUM
  3. IMATINIB MESILATE [Suspect]
     Active Substance: IMATINIB MESYLATE
     Indication: CHRONIC MYELOID LEUKAEMIA
     Dates: start: 20190101, end: 20191203
  4. PREGABALIN. [Concomitant]
     Active Substance: PREGABALIN
  5. LUVION [Concomitant]
  6. MYCOSTATIN [Concomitant]
     Active Substance: NYSTATIN
  7. BISOPROLOL FUMARATE. [Concomitant]
     Active Substance: BISOPROLOL FUMARATE
  8. TARGIN [Concomitant]
     Active Substance: NALOXONE HYDROCHLORIDE\OXYCODONE HYDROCHLORIDE
  9. OMEPRAZOLE. [Concomitant]
     Active Substance: OMEPRAZOLE
  10. DELTACORTENE [Concomitant]
     Active Substance: PREDNISONE
  11. LASIX [Concomitant]
     Active Substance: FUROSEMIDE
  12. AZARGA 10 MG/ML + 5 MG/ML EYE DROPS, SUSPENSION [Concomitant]

REACTIONS (1)
  - Haemoglobin decreased [Unknown]

NARRATIVE: CASE EVENT DATE: 20191203
